FAERS Safety Report 4288880-4 (Version None)
Quarter: 2004Q1

REPORT INFORMATION
  Report Type: 
  Country: None (occurrence: None)
  Receive Date: 20040206
  Receipt Date: 20040206
  Transmission Date: 20041129
  Serious: Yes (Death, Life-Threatening, Hospitalization)
  Sender: FDA-Public Use
  Company Number: None

PATIENT
  Age: 23 Year
  Sex: Male
  Weight: 113.3993 kg

DRUGS (2)
  1. LAMICTAL [Suspect]
     Indication: CONVULSION
     Dosage: 150-200MGS 3X DAY ORAL
     Route: 048
     Dates: start: 20020510, end: 20030308
  2. LAMICTAL [Suspect]
     Indication: EPILEPSY
     Dosage: 150-200MGS 3X DAY ORAL
     Route: 048
     Dates: start: 20020510, end: 20030308

REACTIONS (1)
  - APLASIA PURE RED CELL [None]
